FAERS Safety Report 18549183 (Version 1)
Quarter: 2020Q4

REPORT INFORMATION
  Report Type: Spontaneous
  Country: NL (occurrence: NL)
  Receive Date: 20201126
  Receipt Date: 20201126
  Transmission Date: 20210114
  Serious: Yes (Other)
  Sender: FDA-Public Use
  Company Number: NL-SUN PHARMACEUTICAL INDUSTRIES LTD-2020RR-268953

PATIENT
  Age: 66 Year
  Sex: Male
  Weight: 78 kg

DRUGS (5)
  1. INSULINE ASPART INJVLST 100E/ML / FIASP PENFILL INJVLST 100E/ML PAT... [Concomitant]
     Indication: PRODUCT USED FOR UNKNOWN INDICATION
     Dosage: SOLUTION FOR INJECTION, 100 UNITS / ML (UNITS PER MILLILITER) ()
     Route: 065
  2. INSULINE DEGLUDEC 200E/ML INJVLST / TRESIBA FLEXTOUCH INJVLST 200E/... [Concomitant]
     Indication: PRODUCT USED FOR UNKNOWN INDICATION
     Dosage: SOLUTION FOR INJECTION, 200 UNITS / ML (UNITS PER MILLILITER) ()
     Route: 065
  3. CLARITHROMYCIN. [Suspect]
     Active Substance: CLARITHROMYCIN
     Indication: POLYP
     Dosage: UNK
     Route: 065
     Dates: start: 20201011, end: 20201026
  4. DESLORATADINE TABLET 5MG / BRAND NAME NOT SPECIFIEDDESLORATADINE TA... [Concomitant]
     Indication: PRODUCT USED FOR UNKNOWN INDICATION
     Dosage: TABLET, 5 MG (MILLIGRAM) ()
     Route: 065
  5. BETAMETHASON / BRAND NAME NOT SPECIFIEDBETAMETHASON [Concomitant]
     Indication: POLYP
     Dosage: 500 MILLIGRAM, BID, 2 X PER DAY  1
     Route: 065
     Dates: start: 20201011, end: 20201026

REACTIONS (1)
  - Haematuria [Recovered/Resolved]

NARRATIVE: CASE EVENT DATE: 20201026
